FAERS Safety Report 6415295-2 (Version None)
Quarter: 2009Q4

REPORT INFORMATION
  Report Type: 
  Country: None (occurrence: None)
  Receive Date: 20091027
  Receipt Date: 20091014
  Transmission Date: 20100525
  Serious: Yes (Other)
  Sender: FDA-Public Use
  Company Number: PHHY2009CA37685

PATIENT
  Sex: Male

DRUGS (3)
  1. CLOZARIL [Suspect]
     Indication: SCHIZOPHRENIA
     Dosage: UNK
     Dates: start: 20080220
  2. CLOZARIL [Suspect]
     Dosage: 350 MG, QD
     Route: 048
  3. BISOPROLOL [Concomitant]
     Dosage: 5 MG, QD
     Route: 048

REACTIONS (6)
  - BARRETT'S OESOPHAGUS [None]
  - DYSPEPSIA [None]
  - GASTROOESOPHAGEAL REFLUX DISEASE [None]
  - HIATUS HERNIA [None]
  - MIDDLE INSOMNIA [None]
  - REGURGITATION [None]
